FAERS Safety Report 8424629-9 (Version None)
Quarter: 2012Q2

REPORT INFORMATION
  Report Type: 
  Country: None (occurrence: None)
  Receive Date: 20120611
  Receipt Date: 20120604
  Transmission Date: 20120825
  Serious: Yes (Hospitalization, Other)
  Sender: FDA-Public Use
  Company Number: US-BIOGENIDEC-2010BI019246

PATIENT
  Age: 60 Year
  Sex: Female
  Weight: 74 kg

DRUGS (14)
  1. TYSABRI [Suspect]
     Indication: MULTIPLE SCLEROSIS
     Route: 042
     Dates: start: 20041223, end: 20050101
  2. TYSABRI [Suspect]
     Route: 042
     Dates: start: 20060830, end: 20100429
  3. FOLIC ACID [Concomitant]
  4. CALCIUM [Concomitant]
  5. VITAMIN B COMPLEX CAP [Concomitant]
  6. ASPIRIN [Concomitant]
     Route: 048
  7. RESTASIS [Concomitant]
     Indication: DRY EYE
     Route: 047
  8. LIPITOR [Concomitant]
  9. MULTI-VITAMIN [Concomitant]
  10. ASCORBIC ACID [Concomitant]
  11. COQ10 [Concomitant]
  12. ARTIFICIAL TEARS [Concomitant]
     Indication: DRY EYE
  13. AMBIEN [Concomitant]
     Indication: INSOMNIA
     Route: 048
  14. MAGNESIUM [Concomitant]

REACTIONS (6)
  - IMMUNE RECONSTITUTION SYNDROME [None]
  - CONSTIPATION [None]
  - SINUSITIS [None]
  - PROGRESSIVE MULTIFOCAL LEUKOENCEPHALOPATHY [None]
  - MULTIPLE SCLEROSIS RELAPSE [None]
  - DYSPNOEA [None]
